FAERS Safety Report 9469966 (Version 2)
Quarter: 2013Q3

REPORT INFORMATION
  Report Type: Report from Study
  Country: AZ (occurrence: AZ)
  Receive Date: 20130822
  Receipt Date: 20130822
  Transmission Date: 20140515
  Serious: Yes (Death, Life-Threatening, Hospitalization, Other)
  Sender: FDA-Public Use
  Company Number: PHHY2013AZ076574

PATIENT
  Sex: Male

DRUGS (3)
  1. GLIVEC [Suspect]
     Indication: CHRONIC MYELOID LEUKAEMIA
     Dosage: 600 MG
     Route: 048
  2. GLIVEC [Suspect]
     Dosage: 400 MG
     Route: 048
  3. GLIVEC [Suspect]
     Dosage: UNK
     Dates: end: 201304

REACTIONS (3)
  - Cerebral haemorrhage [Fatal]
  - Blast crisis in myelogenous leukaemia [Unknown]
  - Influenza [Unknown]
